FAERS Safety Report 7257725-2 (Version None)
Quarter: 2011Q1

REPORT INFORMATION
  Report Type: 
  Country: None (occurrence: None)
  Receive Date: 20110129
  Receipt Date: 20100503
  Transmission Date: 20110831
  Serious: No
  Sender: FDA-Public Use
  Company Number: US-ABBOTT-10P-163-0642297-00

PATIENT
  Sex: Female
  Weight: 86.714 kg

DRUGS (12)
  1. METHOTREXATE [Concomitant]
     Indication: RHEUMATOID ARTHRITIS
  2. PRAVASTATIN [Concomitant]
     Indication: BLOOD CHOLESTEROL INCREASED
  3. DARVACET [Concomitant]
     Indication: ARTHRALGIA
     Dosage: 100/65 MG
  4. CYCLOBENZAPRINE [Concomitant]
     Indication: RHEUMATOID ARTHRITIS
  5. FISH OIL [Concomitant]
     Indication: SUPPLEMENTATION THERAPY
  6. VITAMIN D [Concomitant]
     Indication: VITAMIN SUPPLEMENTATION
  7. FOLIC ACID [Concomitant]
     Indication: RHEUMATOID ARTHRITIS
  8. HUMIRA [Suspect]
     Indication: RHEUMATOID ARTHRITIS
     Dates: start: 20080101, end: 20100425
  9. HYDROXYCHLOR [Concomitant]
     Indication: PRODUCT USED FOR UNKNOWN INDICATION
  10. HUMIRA [Suspect]
     Dates: start: 20100502
  11. CITALOPRAM [Concomitant]
     Indication: DEPRESSION
  12. CALCIUM [Concomitant]
     Indication: MINERAL SUPPLEMENTATION

REACTIONS (3)
  - DRUG DOSE OMISSION [None]
  - HERPES ZOSTER [None]
  - LYMPHADENOPATHY [None]
